FAERS Safety Report 22199570 (Version 1)
Quarter: 2023Q2

REPORT INFORMATION
  Report Type: Spontaneous
  Country: MX (occurrence: MX)
  Receive Date: 20230412
  Receipt Date: 20230412
  Transmission Date: 20230722
  Serious: Yes (Death, Hospitalization, Other)
  Sender: FDA-Public Use
  Company Number: MX-BAYER-2022A021400

PATIENT
  Age: 80 Year
  Sex: Male
  Weight: 78 kg

DRUGS (1)
  1. RIVAROXABAN [Suspect]
     Active Substance: RIVAROXABAN
     Indication: Product used for unknown indication
     Dosage: 2.5 MG, BID
     Route: 048
     Dates: start: 20210903

REACTIONS (9)
  - Death [Fatal]
  - Embolism [Unknown]
  - Pneumonia [Unknown]
  - Dizziness [Unknown]
  - Blood pressure decreased [Unknown]
  - Memory impairment [Unknown]
  - Movement disorder [Unknown]
  - Aphasia [Unknown]
  - Discomfort [Unknown]

NARRATIVE: CASE EVENT DATE: 20220122
